FAERS Safety Report 24842752 (Version 2)
Quarter: 2025Q1

REPORT INFORMATION
  Report Type: Spontaneous
  Country: PT (occurrence: PT)
  Receive Date: 20250115
  Receipt Date: 20250120
  Transmission Date: 20250409
  Serious: Yes (Hospitalization, Other)
  Sender: Haleon PLC
  Company Number: PT-HALEON-2221844

PATIENT
  Age: 20 Year
  Sex: Female

DRUGS (3)
  1. ACETAMINOPHEN [Suspect]
     Active Substance: ACETAMINOPHEN
     Indication: Alcoholic hangover
  2. ALCOHOL [Suspect]
     Active Substance: ALCOHOL
     Indication: Product used for unknown indication
  3. CANNABIDIOL\HERBALS [Concomitant]
     Active Substance: CANNABIDIOL\HERBALS
     Indication: Product used for unknown indication

REACTIONS (21)
  - Hepatic encephalopathy [Recovering/Resolving]
  - Choluria [Recovering/Resolving]
  - Respiratory alkalosis [Recovering/Resolving]
  - Hepatic cytolysis [Recovering/Resolving]
  - Acute hepatic failure [Recovering/Resolving]
  - Overdose [Unknown]
  - Abdominal pain [Recovering/Resolving]
  - Vomiting [Recovering/Resolving]
  - Pyrexia [Recovering/Resolving]
  - Pallor [Recovering/Resolving]
  - Ocular icterus [Recovering/Resolving]
  - Abdominal tenderness [Recovering/Resolving]
  - Hepatomegaly [Recovering/Resolving]
  - Behaviour disorder [Recovering/Resolving]
  - Irregular sleep wake rhythm disorder [Recovering/Resolving]
  - Somnolence [Recovering/Resolving]
  - Hypoalbuminaemia [Recovering/Resolving]
  - Pancytopenia [Recovering/Resolving]
  - Coagulopathy [Recovering/Resolving]
  - Hyperammonaemia [Recovering/Resolving]
  - Hepatitis acute [Recovering/Resolving]
